FAERS Safety Report 4523086-2 (Version None)
Quarter: 2004Q4

REPORT INFORMATION
  Report Type: 
  Country: None (occurrence: None)
  Receive Date: 20041208
  Receipt Date: 20041130
  Transmission Date: 20050328
  Serious: Yes (Other)
  Sender: FDA-Public Use
  Company Number: 20040058USST

PATIENT
  Age: 42 Year
  Sex: Female

DRUGS (9)
  1. CARNITENE (L-CARNITINA) (LEVOCARNITINE INJECTION) [Suspect]
     Dosage: 2 G, IV
     Route: 042
     Dates: start: 20041119
  2. LANSOX (LANSOPRAZOLE) [Suspect]
     Indication: GASTRIC HAEMORRHAGE
     Dosage: 30 MG/DAY PO
     Route: 048
     Dates: start: 20041120
  3. MAAKIX(MAGNESIUM  HYDR., ALLUMINIUM HYDR.) [Concomitant]
  4. EUTIROX (THIROXINE) [Concomitant]
  5. NEBILOX (NEBIVOLOL CHLORID) [Concomitant]
  6. EPREX (EPOETIN ALPHA) [Concomitant]
  7. RENAGEL (SELVELAMER) [Concomitant]
  8. SUCRALFIN *SUCRALPHATE) [Concomitant]
  9. CALCIJEX (CALCITHRIOLOLO) [Concomitant]

REACTIONS (3)
  - GASTRIC ULCER HAEMORRHAGE [None]
  - STEVENS-JOHNSON SYNDROME [None]
  - TOXIC EPIDERMAL NECROLYSIS [None]
